FAERS Safety Report 24532776 (Version 1)
Quarter: 2024Q4

REPORT INFORMATION
  Report Type: Report from Study
  Country: CA (occurrence: None)
  Receive Date: 20241022
  Receipt Date: 20241022
  Transmission Date: 20250114
  Serious: Yes (Other)
  Sender: ORION
  Company Number: CA-PFIZER INC-202400279552

PATIENT
  Age: 59 Year
  Sex: Female

DRUGS (11)
  1. METHOTREXATE [Suspect]
     Active Substance: METHOTREXATE
     Indication: Product used for unknown indication
  2. HADLIMA [Suspect]
     Active Substance: ADALIMUMAB-BWWD
     Indication: Rheumatoid arthritis
  3. PREDNISONE [Concomitant]
     Active Substance: PREDNISONE
  4. BUPROPION [Concomitant]
     Active Substance: BUPROPION
  5. ESTROGEL [Concomitant]
     Active Substance: ESTRADIOL
  6. HYDROXYZINE [Concomitant]
     Active Substance: HYDROXYZINE HYDROCHLORIDE
  7. RIVA LEUCOVORIN [Concomitant]
  8. SULFASALAZINE [Concomitant]
     Active Substance: SULFASALAZINE
  9. SYNTHROID [Concomitant]
     Active Substance: LEVOTHYROXINE SODIUM
  10. TEVA TOPISONE [Concomitant]
  11. ZOPICLONE [Concomitant]
     Active Substance: ZOPICLONE

REACTIONS (4)
  - Immunodeficiency [Not Recovered/Not Resolved]
  - Acarodermatitis [Not Recovered/Not Resolved]
  - Pain [Not Recovered/Not Resolved]
  - Rash [Not Recovered/Not Resolved]
